FAERS Safety Report 23594665 (Version 1)
Quarter: 2024Q1

REPORT INFORMATION
  Report Type: Spontaneous
  Country: LB (occurrence: LB)
  Receive Date: 20240305
  Receipt Date: 20240305
  Transmission Date: 20240410
  Serious: Yes (Other)
  Sender: FDA-Public Use
  Company Number: LB-MLMSERVICE-20171208-0994881-1

PATIENT

DRUGS (3)
  1. CARBOPLATIN [Suspect]
     Active Substance: CARBOPLATIN
     Indication: Non-small cell lung cancer stage IIIA
     Dosage: UNK, 4 CYCLES OF COMBINATION THERAPY
     Route: 065
     Dates: start: 201704
  2. PEMETREXED [Suspect]
     Active Substance: PEMETREXED
     Indication: Non-small cell lung cancer stage IIIA
     Dosage: UNK, 4 CYCLES OF COMBINATION THERAPY
     Route: 065
     Dates: start: 201704
  3. KEYTRUDA [Suspect]
     Active Substance: PEMBROLIZUMAB
     Indication: Non-small cell lung cancer stage IIIA
     Dosage: UNK, 2 CYCLES OF KEYTRUDA
     Route: 065
     Dates: start: 201704

REACTIONS (1)
  - Pulmonary sarcoidosis [Unknown]
